FAERS Safety Report 8454964-X (Version None)
Quarter: 2012Q2

REPORT INFORMATION
  Report Type: 
  Country: None (occurrence: None)
  Receive Date: 20120621
  Receipt Date: 20120618
  Transmission Date: 20120825
  Serious: No
  Sender: FDA-Public Use
  Company Number: US-PFIZER INC-2012147554

PATIENT
  Sex: Female
  Weight: 74.83 kg

DRUGS (5)
  1. CHANTIX [Suspect]
     Dosage: UNK
     Dates: start: 20120601, end: 20120601
  2. CHANTIX [Suspect]
     Indication: SMOKING CESSATION THERAPY
     Dosage: 0.5 MG, DAILY
     Dates: start: 20120601, end: 20120601
  3. LITHIUM [Concomitant]
     Indication: DEPRESSION
     Dosage: UNK
  4. SEROQUEL [Concomitant]
     Indication: DEPRESSION
     Dosage: UNK
  5. LAMICTAL [Concomitant]
     Indication: DEPRESSION
     Dosage: UNK

REACTIONS (2)
  - NAUSEA [None]
  - ABDOMINAL PAIN UPPER [None]
